FAERS Safety Report 4450096-6 (Version None)
Quarter: 2004Q3

REPORT INFORMATION
  Report Type: 
  Country: None (occurrence: None)
  Receive Date: 20040910
  Receipt Date: 20040714
  Transmission Date: 20050211
  Serious: Yes (Hospitalization)
  Sender: FDA-Public Use
  Company Number: S04-USA-04369-01

PATIENT
  Age: 45 Year
  Sex: Male

DRUGS (3)
  1. LEXAPRO [Suspect]
     Indication: BIPOLAR DISORDER
     Dosage: 10 MG QD PO
     Route: 048
  2. LAMICTAL [Suspect]
     Indication: BIPOLAR DISORDER
     Dosage: 150 MG QD
     Dates: start: 20040101
  3. NEXIUM [Concomitant]

REACTIONS (2)
  - BRADYCARDIA [None]
  - DEPRESSION [None]
